FAERS Safety Report 15576756 (Version 1)
Quarter: 2018Q4

REPORT INFORMATION
  Report Type: Spontaneous
  Country: BR (occurrence: BR)
  Receive Date: 20181101
  Receipt Date: 20181101
  Transmission Date: 20190205
  Serious: Yes (Other)
  Sender: FDA-Public Use
  Company Number: BR-GLAXOSMITHKLINE-BR2017204410

PATIENT

DRUGS (7)
  1. FORASEQ [Suspect]
     Active Substance: BUDESONIDE\FORMOTEROL FUMARATE
     Indication: FATIGUE
  2. FORASEQ [Suspect]
     Active Substance: BUDESONIDE\FORMOTEROL FUMARATE
     Indication: DYSPNOEA
  3. OMEPRAZOLE. [Concomitant]
     Active Substance: OMEPRAZOLE
     Indication: PRODUCT USED FOR UNKNOWN INDICATION
     Dosage: UNK
     Route: 065
  4. FORASEQ [Suspect]
     Active Substance: BUDESONIDE\FORMOTEROL FUMARATE
     Indication: RESPIRATORY FAILURE
  5. FORASEQ [Suspect]
     Active Substance: BUDESONIDE\FORMOTEROL FUMARATE
     Indication: BRONCHITIS
     Dosage: 1 OR 2 DF, PRN
     Route: 055
  6. DIPYRONE [Concomitant]
     Active Substance: DIPYRONE
     Indication: SPINAL PAIN
     Dosage: UNK
     Route: 065
  7. DICLOFENAC POTASSIUM. [Suspect]
     Active Substance: DICLOFENAC POTASSIUM
     Indication: PRODUCT USED FOR UNKNOWN INDICATION
     Dosage: UNK
     Route: 065

REACTIONS (12)
  - Malaise [Unknown]
  - Respiratory failure [Unknown]
  - Productive cough [Unknown]
  - Fatigue [Unknown]
  - Abdominal pain upper [Unknown]
  - Product use in unapproved indication [Unknown]
  - Prostate cancer [Unknown]
  - Dyspnoea [Unknown]
  - Drug dependence [Unknown]
  - Heart rate abnormal [Recovered/Resolved]
  - Cough [Unknown]
  - Memory impairment [Unknown]
